FAERS Safety Report 5574479-6 (Version None)
Quarter: 2007Q4

REPORT INFORMATION
  Report Type: 
  Country: None (occurrence: None)
  Receive Date: 20071227
  Receipt Date: 20071219
  Transmission Date: 20080405
  Serious: Yes (Hospitalization)
  Sender: FDA-Public Use
  Company Number: JP-ROCHE-537825

PATIENT
  Age: 32 Month
  Sex: Female
  Weight: 14 kg

DRUGS (1)
  1. OSELTAMIVIR [Suspect]
     Route: 048

REACTIONS (1)
  - ENCEPHALOPATHY [None]
